FAERS Safety Report 24239863 (Version 1)
Quarter: 2024Q3

REPORT INFORMATION
  Report Type: Spontaneous
  Country: US (occurrence: US)
  Receive Date: 20240822
  Receipt Date: 20240822
  Transmission Date: 20241017
  Serious: No
  Sender: AVADEL CNS PHARMA
  Company Number: US-AVADEL CNS PHARMACEUTICALS, LLC-2024AVA01381

PATIENT
  Age: 28 Year
  Sex: Female

DRUGS (3)
  1. LUMRYZ [Suspect]
     Active Substance: SODIUM OXYBATE
     Dosage: ^LOWER DOSE (4.5 G)^
     Dates: start: 2024, end: 2024
  2. LUMRYZ [Suspect]
     Active Substance: SODIUM OXYBATE
     Dosage: 6 G, ONCE NIGHTLY
     Dates: start: 2024, end: 2024
  3. SUNOSI [Concomitant]
     Active Substance: SOLRIAMFETOL
     Dosage: UNK, DURING THE DAY
     Dates: start: 202311

REACTIONS (9)
  - Feeling abnormal [Unknown]
  - Chest pain [Unknown]
  - Insomnia [Unknown]
  - Autoscopy [Unknown]
  - Hypertension [Unknown]
  - Pain in extremity [Unknown]
  - Paranoia [Unknown]
  - Anxiety [Unknown]
  - Blood pressure diastolic increased [Unknown]

NARRATIVE: CASE EVENT DATE: 20240101
